FAERS Safety Report 21644250 (Version 1)
Quarter: 2022Q4

REPORT INFORMATION
  Report Type: Spontaneous
  Country: JP (occurrence: JP)
  Receive Date: 20221125
  Receipt Date: 20221125
  Transmission Date: 20230113
  Serious: Yes (Hospitalization)
  Sender: FDA-Public Use
  Company Number: JP-ELI_LILLY_AND_COMPANY-JP202211009384

PATIENT
  Age: 75 Year
  Sex: Male

DRUGS (2)
  1. VERZENIO [Suspect]
     Active Substance: ABEMACICLIB
     Indication: Breast cancer male
     Route: 048
  2. FEMARA [Concomitant]
     Active Substance: LETROZOLE
     Indication: Breast cancer male
     Dosage: UNK
     Route: 048

REACTIONS (1)
  - Angina pectoris [Unknown]
